FAERS Safety Report 7912765-2 (Version None)
Quarter: 2011Q4

REPORT INFORMATION
  Report Type: 
  Country: None (occurrence: None)
  Receive Date: 20111114
  Receipt Date: 20111102
  Transmission Date: 20120403
  Serious: Yes (Hospitalization)
  Sender: FDA-Public Use
  Company Number: US-GLAXOSMITHKLINE-A0801981A

PATIENT
  Age: 70 Year
  Sex: Male
  Weight: 91.8 kg

DRUGS (3)
  1. ZOCOR [Concomitant]
  2. AVANDIA [Suspect]
     Indication: DIABETES MELLITUS
     Dosage: 8MG PER DAY
     Route: 048
     Dates: start: 20000101
  3. METFORMIN [Concomitant]

REACTIONS (5)
  - HYPERTENSION [None]
  - PERIPHERAL VASCULAR DISORDER [None]
  - THROMBOSIS [None]
  - CAROTID ARTERY DISEASE [None]
  - CORONARY ARTERY DISEASE [None]
